FAERS Safety Report 9492622 (Version 1)
Quarter: 2013Q3

REPORT INFORMATION
  Report Type: Spontaneous
  Country: US (occurrence: US)
  Receive Date: 20130830
  Receipt Date: 20130830
  Transmission Date: 20140515
  Serious: No
  Sender: FDA-Public Use
  Company Number: US-VERTEX PHARMACEUTICALS INC-2013-009143

PATIENT
  Age: 44 Year
  Sex: Female
  Weight: 61 kg

DRUGS (4)
  1. INCIVEK [Suspect]
     Indication: HEPATITIS C
     Dosage: 750 MG, TID
     Route: 048
     Dates: start: 20130705, end: 20130823
  2. RIBAVIRIN [Suspect]
     Indication: HEPATITIS C
     Dosage: 400 MG, BID
     Route: 048
     Dates: start: 20130705, end: 20130823
  3. RIBAVIRIN [Suspect]
     Dosage: UNK
     Dates: start: 20130825
  4. PEGASYS [Suspect]
     Indication: HEPATITIS C
     Dosage: 180 ?G, QW
     Route: 058
     Dates: start: 20130705

REACTIONS (2)
  - Pyrexia [Recovered/Resolved]
  - Rash erythematous [Recovered/Resolved]
